FAERS Safety Report 15908566 (Version 1)
Quarter: 2019Q1

REPORT INFORMATION
  Report Type: Spontaneous
  Country: US (occurrence: US)
  Receive Date: 20190204
  Receipt Date: 20190204
  Transmission Date: 20190417
  Serious: No
  Sender: FDA-Public Use
  Company Number: US-PFIZER INC-2019043603

PATIENT
  Age: 66 Year
  Sex: Female
  Weight: 43.99 kg

DRUGS (2)
  1. XALKORI [Suspect]
     Active Substance: CRIZOTINIB
     Indication: LUNG NEOPLASM MALIGNANT
     Dosage: UNK
     Dates: start: 201811, end: 201812
  2. XALKORI [Suspect]
     Active Substance: CRIZOTINIB
     Dosage: UNK, 1X/DAY (AT NIGHT)
     Dates: start: 20190109

REACTIONS (4)
  - Nausea [Unknown]
  - Malaise [Unknown]
  - Choking sensation [Not Recovered/Not Resolved]
  - Intentional product misuse [Unknown]

NARRATIVE: CASE EVENT DATE: 201901
